FAERS Safety Report 7757582-1 (Version None)
Quarter: 2011Q3

REPORT INFORMATION
  Report Type: 
  Country: None (occurrence: None)
  Receive Date: 20110916
  Receipt Date: 20110913
  Transmission Date: 20111222
  Serious: Yes (Life-Threatening, Hospitalization, Other)
  Sender: FDA-Public Use
  Company Number: PHHO2011GT15561

PATIENT
  Sex: Female
  Weight: 64.5 kg

DRUGS (9)
  1. LOSARTAN POTASSIUM AND HYDROCHLOROTHIAZIDE [Concomitant]
     Indication: HYPERTENSION
     Dosage: 50/12.5 MG
     Dates: start: 20110407
  2. BISOPROLOL FUMARATE [Concomitant]
     Indication: CARDIAC FAILURE CONGESTIVE
     Dosage: 2.5 MG, QD
     Route: 048
     Dates: start: 20110407
  3. BLINDED NO TREATMENT RECEIVED [Suspect]
     Indication: CARDIAC FAILURE CONGESTIVE
     Dosage: DOUBLE BLINDED
     Route: 048
     Dates: start: 20101019
  4. BLINDED PLACEBO [Suspect]
     Indication: CARDIAC FAILURE CONGESTIVE
     Dosage: DOUBLE BLINDED
     Route: 048
     Dates: start: 20101019
  5. ASPIRIN [Concomitant]
     Indication: CARDIAC FAILURE CONGESTIVE
     Dosage: 81 MG, QD
     Route: 048
     Dates: start: 20110819
  6. WARFARIN SODIUM [Suspect]
     Indication: PULMONARY EMBOLISM
     Dosage: 5 MG, QD
     Route: 048
     Dates: start: 20110805, end: 20110903
  7. BLINDED LAF237 [Suspect]
     Indication: CARDIAC FAILURE CONGESTIVE
     Dosage: DOUBLE BLINDED
     Route: 048
     Dates: start: 20101019
  8. FUROSEMIDE [Concomitant]
     Indication: CARDIAC FAILURE CONGESTIVE
     Dosage: 20 MG, QD
     Route: 048
     Dates: start: 20110407
  9. DIGOXIN [Concomitant]
     Indication: CARDIAC FAILURE CONGESTIVE
     Dosage: 0.25 MG, UNK
     Dates: start: 20091030

REACTIONS (2)
  - TOXICITY TO VARIOUS AGENTS [None]
  - CONCOMITANT DISEASE PROGRESSION [None]
